FAERS Safety Report 9337763 (Version 2)
Quarter: 2013Q4

REPORT INFORMATION
  Report Type: Spontaneous
  Country: US (occurrence: US)
  Receive Date: 20130607
  Receipt Date: 20131101
  Transmission Date: 20140711
  Serious: Yes (Hospitalization)
  Sender: FDA-Public Use
  Company Number: US-B.I. PHARMACEUTICALS,INC./RIDGEFIELD-2013-BI-15786BP

PATIENT
  Age: 83 Year
  Sex: Female

DRUGS (11)
  1. PRADAXA [Suspect]
     Indication: ATRIAL FIBRILLATION
     Dosage: 300 MG
     Dates: start: 20110501, end: 20120222
  2. LOVASTATIN [Concomitant]
     Dosage: 40 MG
  3. LASIX [Concomitant]
     Dosage: 20 MG
  4. METOPROLOL [Concomitant]
     Dosage: 300 MG
  5. LAMICTAL [Concomitant]
  6. AMLODIPINE [Concomitant]
     Dosage: 5 MG
  7. CALCIUM AND VITAMIN D [Concomitant]
  8. PHENOL LAXATIVE [Concomitant]
  9. STOOL SOFTENER [Concomitant]
  10. ASPIRIN [Concomitant]
     Dosage: 81 MG
  11. FOLIC ACID [Concomitant]

REACTIONS (7)
  - Pelvic haematoma [Unknown]
  - Fall [Unknown]
  - Haemoglobin decreased [Unknown]
  - Coagulopathy [Unknown]
  - Pubis fracture [Unknown]
  - Fractured sacrum [Unknown]
  - Spinal compression fracture [Unknown]
